FAERS Safety Report 8910571 (Version 1)
Quarter: 2012Q4

REPORT INFORMATION
  Report Type: 
  Country: US (occurrence: US)
  Receive Date: 20121114
  Receipt Date: 20121114
  Transmission Date: 20130627
  Serious: Yes (Hospitalization)
  Sender: FDA-Public Use
  Company Number: US-GLAXOSMITHKLINE-A0998387A

PATIENT
  Age: 49 Year
  Sex: Male

DRUGS (14)
  1. ADVAIR [Suspect]
     Indication: CHRONIC OBSTRUCTIVE PULMONARY DISEASE
     Dosage: 1PUFF Twice per day
     Route: 055
     Dates: start: 2005
  2. BABY ASPIRIN [Concomitant]
  3. ALBUTEROL + IPRATROPIUM BROMIDE [Concomitant]
     Route: 055
  4. THEOPHYLLIN [Concomitant]
  5. OXYGEN [Concomitant]
  6. ALTACE [Concomitant]
  7. CYCLOBENZAPRINE HCL [Concomitant]
  8. FLONASE [Concomitant]
  9. GABAPENTIN [Concomitant]
  10. GLIPIZIDE [Concomitant]
  11. METFORMIN [Concomitant]
  12. MUCINEX [Concomitant]
  13. MULTIVITAMIN [Concomitant]
  14. PROAIR HFA [Concomitant]
     Route: 055

REACTIONS (4)
  - Pneumonia [Unknown]
  - Blood glucose fluctuation [Not Recovered/Not Resolved]
  - Weight increased [Not Recovered/Not Resolved]
  - Chronic obstructive pulmonary disease [Not Recovered/Not Resolved]
